FAERS Safety Report 24416618 (Version 1)
Quarter: 2024Q4

REPORT INFORMATION
  Report Type: Spontaneous
  Country: IT (occurrence: IT)
  Receive Date: 20241009
  Receipt Date: 20241009
  Transmission Date: 20250114
  Serious: Yes (Life-Threatening, Hospitalization, Other)
  Sender: ASTELLAS
  Company Number: IT-ASTELLAS-2024-AER-010954

PATIENT
  Sex: Female

DRUGS (12)
  1. ISAVUCONAZOLE [Suspect]
     Active Substance: ISAVUCONAZOLE
     Indication: Bronchopulmonary aspergillosis
     Dosage: AFTER THE LOADING DOSE. THROUGH LEVEL (MCG/ML)- ON DAY 22- 6, DAY 28 - 1.9, DAY 33- 1.4
     Route: 042
  2. ISAVUCONAZOLE [Suspect]
     Active Substance: ISAVUCONAZOLE
     Route: 042
  3. AMPHOTERICIN B [Concomitant]
     Active Substance: AMPHOTERICIN B
     Indication: Bronchopulmonary aspergillosis
     Dosage: ON DAY 13
     Route: 042
  4. MEROPENEM [Concomitant]
     Active Substance: MEROPENEM
     Indication: Pneumonia
     Route: 050
  5. MEROPENEM [Concomitant]
     Active Substance: MEROPENEM
     Indication: Bronchopulmonary aspergillosis
     Route: 065
  6. AMIKACIN [Concomitant]
     Active Substance: AMIKACIN
     Indication: Pneumonia
     Route: 065
  7. VANCOMYCIN [Concomitant]
     Active Substance: VANCOMYCIN
     Indication: Bronchopulmonary aspergillosis
     Route: 065
  8. VORICONAZOLE [Concomitant]
     Active Substance: VORICONAZOLE
     Indication: Bronchopulmonary aspergillosis
     Dosage: ON DAY 1. THROUGH LEVEL (MCG/ML)- ON DAY 6- 3.2, DAY 13 - 2.2
     Route: 065
  9. VORICONAZOLE [Concomitant]
     Active Substance: VORICONAZOLE
     Route: 065
  10. OSELTAMIVIR [Concomitant]
     Active Substance: OSELTAMIVIR
     Indication: Influenza
     Route: 065
  11. METHYLPREDNISOLONE [Concomitant]
     Active Substance: METHYLPREDNISOLONE
     Indication: Bronchopulmonary aspergillosis
     Route: 042
  12. CASPOFUNGIN [Concomitant]
     Active Substance: CASPOFUNGIN
     Indication: Bronchopulmonary aspergillosis
     Dosage: STARTING FROM DAY 7. PEAK LEVEL (MG/L)- ON DAY 21- 8.7, DAY 25 - 16.1.
     Route: 065

REACTIONS (2)
  - Liver injury [Unknown]
  - Prescribed overdose [Unknown]
